FAERS Safety Report 25360402 (Version 1)
Quarter: 2025Q2

REPORT INFORMATION
  Report Type: Spontaneous
  Country: US (occurrence: US)
  Receive Date: 20250527
  Receipt Date: 20250527
  Transmission Date: 20250716
  Serious: No
  Sender: UNIQUE PHARMACEUTICALS
  Company Number: US-UniquePharma-US-2025UPLSPO00050

PATIENT

DRUGS (1)
  1. OXYBUTYNIN CHLORIDE [Suspect]
     Active Substance: OXYBUTYNIN CHLORIDE
     Indication: Bladder spasm
     Route: 065

REACTIONS (7)
  - Disorientation [Unknown]
  - Pyrexia [Unknown]
  - Pain [Unknown]
  - Dehydration [Unknown]
  - Headache [Unknown]
  - Dizziness [Unknown]
  - Dry skin [Unknown]
